FAERS Safety Report 24849875 (Version 1)
Quarter: 2025Q1

REPORT INFORMATION
  Report Type: Other
  Country: US (occurrence: US)
  Receive Date: 20250116
  Receipt Date: 20250116
  Transmission Date: 20250408
  Serious: Yes (Other)
  Sender: PL DEVELOPMENTS
  Company Number: US-P+L Developments of Newyork Corporation-2169177

PATIENT
  Age: 50 Year
  Sex: Male

DRUGS (1)
  1. ESOMEPRAZOLE MAGNESIUM [Suspect]
     Active Substance: ESOMEPRAZOLE MAGNESIUM
     Indication: Product used for unknown indication

REACTIONS (1)
  - Gastrointestinal neuroendocrine tumour [Recovered/Resolved]
